FAERS Safety Report 19092799 (Version 1)
Quarter: 2021Q2

REPORT INFORMATION
  Report Type: Spontaneous
  Country: NL (occurrence: NL)
  Receive Date: 20210405
  Receipt Date: 20210405
  Transmission Date: 20210717
  Serious: No
  Sender: FDA-Public Use
  Company Number: NL-AMGEN-NLDSP2021045825

PATIENT
  Age: 74 Year
  Sex: Female
  Weight: 59.8 kg

DRUGS (4)
  1. TALIMOGENE LAHERPAREPVEC [Suspect]
     Active Substance: TALIMOGENE LAHERPAREPVEC
     Dosage: UNK (10^8 PFU/ML  EVERY 2 WEEKS, EXCEPT FOR THE SECOND DOSE WHICH WAS ADMINISTERED 3 WEEKS AFTER THE
     Route: 026
  2. LORMETAZEPAM [Concomitant]
     Active Substance: LORMETAZEPAM
     Dosage: 2 MILLIGRAM, AS NECESSARY
  3. MACROGOL [Concomitant]
     Active Substance: POLYETHYLENE GLYCOLS
     Dosage: UNK UNK, ONE TIME A DAY AS NECESSARY
  4. TALIMOGENE LAHERPAREPVEC [Suspect]
     Active Substance: TALIMOGENE LAHERPAREPVEC
     Indication: METASTATIC MALIGNANT MELANOMA
     Dosage: UNK (10^6 PLAQUE?FORMING UNITS (PFU)/ML)
     Route: 026

REACTIONS (1)
  - Oral herpes [Unknown]

NARRATIVE: CASE EVENT DATE: 20190214
